FAERS Safety Report 8901980 (Version 1)
Quarter: 2012Q4

REPORT INFORMATION
  Report Type: 
  Country: US (occurrence: US)
  Receive Date: 20121109
  Receipt Date: 20121109
  Transmission Date: 20130627
  Serious: Yes (Disabling, Other)
  Sender: FDA-Public Use
  Company Number: US-009507513-1211USA004305

PATIENT

DRUGS (1)
  1. HYZAAR [Suspect]
     Route: 048

REACTIONS (1)
  - Hypersensitivity [Unknown]
